FAERS Safety Report 7450613-8 (Version None)
Quarter: 2011Q2

REPORT INFORMATION
  Report Type: 
  Country: None (occurrence: None)
  Receive Date: 20110422
  Receipt Date: 20110415
  Transmission Date: 20111010
  Serious: Yes (Other)
  Sender: FDA-Public Use
  Company Number: 1000020237

PATIENT
  Age: 61 Year
  Sex: Female

DRUGS (1)
  1. MEMANTINE [Suspect]

REACTIONS (3)
  - CONDITION AGGRAVATED [None]
  - ABNORMAL DREAMS [None]
  - HALLUCINATION [None]
